FAERS Safety Report 14580195 (Version 1)
Quarter: 2018Q1

REPORT INFORMATION
  Report Type: Spontaneous
  Country: IN (occurrence: IN)
  Receive Date: 20180228
  Receipt Date: 20180228
  Transmission Date: 20180509
  Serious: Yes (Other)
  Sender: FDA-Public Use
  Company Number: IN-BION-007002

PATIENT
  Age: 21 Year
  Sex: Male

DRUGS (1)
  1. CETIRIZINE/CETIRIZINE HYDROCHLORIDE [Suspect]
     Active Substance: CETIRIZINE HYDROCHLORIDE
     Indication: ECZEMA NUMMULAR
     Route: 048

REACTIONS (2)
  - Fixed eruption [Recovered/Resolved]
  - Product use in unapproved indication [Not Recovered/Not Resolved]
